FAERS Safety Report 9979885 (Version 1)
Quarter: 2014Q1

REPORT INFORMATION
  Report Type: Report from Study
  Country: US (occurrence: US)
  Receive Date: 20140307
  Receipt Date: 20140307
  Transmission Date: 20141002
  Serious: No
  Sender: FDA-Public Use
  Company Number: US-ABBVIE-13P-163-1174261-00

PATIENT
  Age: 42 Year
  Sex: Female

DRUGS (9)
  1. HUMIRA [Suspect]
     Indication: CROHN^S DISEASE
     Dosage: LOADING DOSE
     Dates: start: 20121018, end: 20121018
  2. HUMIRA [Suspect]
     Dosage: LOADING DOSE
  3. HUMIRA [Suspect]
     Dates: start: 201210
  4. PROMETHAZINE [Concomitant]
     Indication: NAUSEA
     Dosage: ONE EVERY FOUR TO SIX HOURS
  5. PROMETHAZINE [Concomitant]
     Indication: VOMITING
  6. LISINOPRIL [Concomitant]
     Indication: HYPERTENSION
  7. SPIRONOLACTONE [Concomitant]
     Indication: FLUID RETENTION
  8. TRAMADOL [Concomitant]
     Indication: PAIN
     Dosage: EVERY SIX HOURS
  9. BUDESONIDE [Concomitant]
     Indication: PRODUCT USED FOR UNKNOWN INDICATION

REACTIONS (10)
  - Skin mass [Not Recovered/Not Resolved]
  - Skin burning sensation [Not Recovered/Not Resolved]
  - Pain [Not Recovered/Not Resolved]
  - Mobility decreased [Not Recovered/Not Resolved]
  - Inflammation [Not Recovered/Not Resolved]
  - Anxiety [Not Recovered/Not Resolved]
  - Blood cholesterol increased [Not Recovered/Not Resolved]
  - Tension headache [Not Recovered/Not Resolved]
  - Injection site mass [Unknown]
  - Cough [Not Recovered/Not Resolved]
